FAERS Safety Report 8012783-2 (Version None)
Quarter: 2011Q4

REPORT INFORMATION
  Report Type: 
  Country: None (occurrence: None)
  Receive Date: 20111223
  Receipt Date: 20111223
  Transmission Date: 20120403
  Serious: Yes (Life-Threatening, Hospitalization)
  Sender: FDA-Public Use
  Company Number: None

PATIENT
  Age: 70 Year
  Sex: Female
  Weight: 74.8435 kg

DRUGS (3)
  1. AVELOX [Suspect]
     Indication: INFECTION
     Dosage: 400 MG. 2X DY MOUTH
     Route: 048
     Dates: start: 20110123
  2. AVELOX [Suspect]
     Indication: SINUSITIS
     Dosage: 400 MG. 2X DY MOUTH
     Route: 048
     Dates: start: 20110123
  3. AVELOX [Suspect]
     Indication: COUGH
     Dosage: 400 MG. 2X DY MOUTH
     Route: 048
     Dates: start: 20110123

REACTIONS (6)
  - THROAT TIGHTNESS [None]
  - DIZZINESS [None]
  - HYPERSENSITIVITY [None]
  - SKIN WARM [None]
  - ERYTHEMA [None]
  - PRURITUS [None]
